FAERS Safety Report 4680387-5 (Version None)
Quarter: 2005Q2

REPORT INFORMATION
  Report Type: 
  Country: None (occurrence: None)
  Receive Date: 20050531
  Receipt Date: 20050203
  Transmission Date: 20051028
  Serious: No
  Sender: FDA-Public Use
  Company Number: WAES 0502USA02370

PATIENT
  Age: 66 Year
  Sex: Female

DRUGS (2)
  1. ZETIA [Suspect]
     Dosage: MG/UNK/PO
     Route: 048
     Dates: start: 20040101
  2. NIACIN [Concomitant]

REACTIONS (1)
  - ABDOMINAL PAIN LOWER [None]
